FAERS Safety Report 12452862 (Version 1)
Quarter: 2016Q2

REPORT INFORMATION
  Report Type: Spontaneous
  Country: US (occurrence: US)
  Receive Date: 20160609
  Receipt Date: 20160609
  Transmission Date: 20160815
  Serious: No
  Sender: FDA-Public Use
  Company Number: US-BAYER-2016-112978

PATIENT
  Age: 53 Year
  Sex: Female
  Weight: 79.37 kg

DRUGS (1)
  1. MIRALAX [Suspect]
     Active Substance: POLYETHYLENE GLYCOL 3350
     Indication: CONSTIPATION
     Dosage: 0.5 DF, ALMOST EVERY DAY
     Route: 048
     Dates: start: 2014

REACTIONS (2)
  - Product contamination physical [None]
  - Product use issue [None]

NARRATIVE: CASE EVENT DATE: 2014
